FAERS Safety Report 18203011 (Version 3)
Quarter: 2021Q1

REPORT INFORMATION
  Report Type: Spontaneous
  Country: US (occurrence: US)
  Receive Date: 20200827
  Receipt Date: 20210201
  Transmission Date: 20210419
  Serious: Yes (Other)
  Sender: FDA-Public Use
  Company Number: NVSC2020US236217

PATIENT
  Age: 79 Year
  Sex: Female

DRUGS (3)
  1. BEOVU [Suspect]
     Active Substance: BROLUCIZUMAB-DBLL
     Dosage: 0.05 ML
     Route: 031
     Dates: start: 20200625
  2. BEOVU [Suspect]
     Active Substance: BROLUCIZUMAB-DBLL
     Indication: NEOVASCULAR AGE-RELATED MACULAR DEGENERATION
     Dosage: 0.05 ML (1X)
     Route: 031
     Dates: start: 20200303
  3. BEOVU [Suspect]
     Active Substance: BROLUCIZUMAB-DBLL
     Dosage: 0.05 ML
     Route: 031
     Dates: start: 20200430

REACTIONS (4)
  - Visual acuity reduced [Unknown]
  - Vitritis [Recovering/Resolving]
  - Vision blurred [Unknown]
  - Vitreous floaters [Unknown]

NARRATIVE: CASE EVENT DATE: 20200721
